FAERS Safety Report 7553892-1 (Version None)
Quarter: 2011Q2

REPORT INFORMATION
  Report Type: 
  Country: None (occurrence: None)
  Receive Date: 20110617
  Receipt Date: 20110606
  Transmission Date: 20111010
  Serious: Yes (Hospitalization, Other)
  Sender: FDA-Public Use
  Company Number: FR-ELI_LILLY_AND_COMPANY-FR201103008451

PATIENT
  Age: 48 Year
  Sex: Male
  Weight: 70 kg

DRUGS (8)
  1. PREDNISOLONE [Concomitant]
     Indication: PROPHYLAXIS
  2. EMEND [Concomitant]
  3. ALIMTA [Suspect]
     Indication: LUNG ADENOCARCINOMA
     Dosage: 500 MG/M2 EVERY THREE WEEKS
     Route: 042
     Dates: start: 20110221
  4. ONDANSERTRON HYDROCHLORIDE [Concomitant]
  5. CISPLATIN [Concomitant]
     Indication: LUNG ADENOCARCINOMA
     Dosage: 75MG/M2 EVERY THREE WEEKS
     Route: 042
     Dates: start: 20110221
  6. VITAMIN B-12 [Concomitant]
     Indication: VITAMIN SUPPLEMENTATION
  7. PRIMPERAN TAB [Concomitant]
  8. FOLIC ACID [Concomitant]
     Indication: VITAMIN SUPPLEMENTATION
     Dosage: UNK, UNKNOWN
     Route: 065

REACTIONS (6)
  - MUCOSAL INFLAMMATION [None]
  - ABDOMINAL PAIN [None]
  - PANCYTOPENIA [None]
  - OESOPHAGITIS [None]
  - BLOOD FOLATE DECREASED [None]
  - WEIGHT DECREASED [None]
